FAERS Safety Report 17693627 (Version 2)
Quarter: 2020Q2

REPORT INFORMATION
  Report Type: Other
  Country: US (occurrence: US)
  Receive Date: 20200422
  Receipt Date: 20200430
  Transmission Date: 20200714
  Serious: No
  Sender: FDA-Public Use
  Company Number: US-AMAG PHARMACEUTICALS, INC.-AMAG202001233

PATIENT
  Age: 29 Year
  Sex: Female

DRUGS (1)
  1. MAKENA [Suspect]
     Active Substance: HYDROXYPROGESTERONE CAPROATE
     Indication: PREMATURE DELIVERY
     Route: 058
     Dates: end: 202004

REACTIONS (3)
  - Limb discomfort [Recovered/Resolved]
  - Product administration error [Unknown]
  - Injection site nodule [Unknown]

NARRATIVE: CASE EVENT DATE: 20200401
